FAERS Safety Report 5895841-8 (Version None)
Quarter: 2008Q3

REPORT INFORMATION
  Report Type: 
  Country: None (occurrence: None)
  Receive Date: 20080924
  Receipt Date: 20080917
  Transmission Date: 20090109
  Serious: Yes (Life-Threatening)
  Sender: FDA-Public Use
  Company Number: FR-JNJFOC-20080905419

PATIENT
  Age: 30 Year
  Sex: Male

DRUGS (3)
  1. IXPRIM [Suspect]
     Indication: SYNOVITIS
     Route: 048
  2. PYOSTACINE [Suspect]
     Indication: SYNOVITIS
     Route: 048
  3. BI-PROFENID [Suspect]
     Indication: SYNOVITIS
     Route: 065

REACTIONS (1)
  - CARDIAC ARREST [None]
